FAERS Safety Report 5425652-9 (Version None)
Quarter: 2007Q3

REPORT INFORMATION
  Report Type: 
  Country: None (occurrence: None)
  Receive Date: 20070824
  Receipt Date: 20070814
  Transmission Date: 20080115
  Serious: Yes (Other)
  Sender: FDA-Public Use
  Company Number: FR-PFIZER INC-2007067882

PATIENT
  Sex: Male
  Weight: 74 kg

DRUGS (10)
  1. VORICONAZOLE [Suspect]
     Dates: start: 20060501, end: 20060601
  2. VORICONAZOLE [Interacting]
     Dates: start: 20070501, end: 20070715
  3. PROGRAF [Concomitant]
  4. AZATHIOPRINE SODIUM [Concomitant]
  5. CORTANCYL [Concomitant]
  6. ZITHROMAX [Concomitant]
  7. NEXIUM [Concomitant]
  8. PREVISCAN [Concomitant]
  9. NOVONORM [Concomitant]
  10. ELISOR [Concomitant]

REACTIONS (2)
  - DRUG INTERACTION [None]
  - PHOTOSENSITIVITY REACTION [None]
